FAERS Safety Report 10166672 (Version 1)
Quarter: 2014Q2

REPORT INFORMATION
  Report Type: Spontaneous
  Country: JP (occurrence: JP)
  Receive Date: 20140512
  Receipt Date: 20140512
  Transmission Date: 20141212
  Serious: Yes (Death)
  Sender: FDA-Public Use
  Company Number: JP-PFIZER INC-2014125477

PATIENT
  Age: 35 Year
  Sex: Female
  Weight: 46 kg

DRUGS (4)
  1. HEPARIN SODIUM [Suspect]
     Dosage: PLASMA HEPARIN CONCENTRATION ABOVE 0.2 U/ML
  2. ACETYLSALICYLIC ACID [Suspect]
     Indication: ANTIPHOSPHOLIPID SYNDROME
     Dosage: UNK
  3. PREDNISOLONE [Suspect]
     Dosage: 10-20 MG/KG BODY WEIGHT
  4. IVIG [Suspect]
     Dosage: 400 MG/KG, BODY WEIGHT

REACTIONS (1)
  - Foetal death [Fatal]
